FAERS Safety Report 7702322-5 (Version None)
Quarter: 2011Q3

REPORT INFORMATION
  Report Type: 
  Country: None (occurrence: None)
  Receive Date: 20110822
  Receipt Date: 20110817
  Transmission Date: 20111222
  Serious: Yes (Death)
  Sender: FDA-Public Use
  Company Number: PHHY2011GB46376

PATIENT
  Age: 60 Year
  Sex: Male

DRUGS (4)
  1. ACETAMINOPHEN [Concomitant]
  2. DIHYDROCODEINE BITARTRATE INJ [Suspect]
  3. MORPHINE [Suspect]
  4. TRAMADOL HCL [Suspect]

REACTIONS (5)
  - BRONCHOPNEUMONIA [None]
  - ABDOMINAL DISCOMFORT [None]
  - HEPATIC CIRRHOSIS [None]
  - RESPIRATORY RATE DECREASED [None]
  - CONDITION AGGRAVATED [None]
